FAERS Safety Report 15479600 (Version 1)
Quarter: 2018Q4

REPORT INFORMATION
  Report Type: Other
  Country: BD (occurrence: BD)
  Receive Date: 20181009
  Receipt Date: 20181009
  Transmission Date: 20190205
  Serious: Yes (Disabling, Other)
  Sender: FDA-Public Use
  Company Number: BD-KNIGHT THERAPEUTICS (USA) INC.-2055861

PATIENT
  Age: 16 Year
  Sex: Male

DRUGS (1)
  1. IMPAVIDO [Suspect]
     Active Substance: MILTEFOSINE
     Indication: VISCERAL LEISHMANIASIS
     Route: 048

REACTIONS (2)
  - Ulcerative keratitis [Recovered/Resolved with Sequelae]
  - Intentional product misuse [Recovered/Resolved]
